FAERS Safety Report 11437554 (Version 2)
Quarter: 2015Q3

REPORT INFORMATION
  Report Type: Spontaneous
  Country: US (occurrence: US)
  Receive Date: 20150831
  Receipt Date: 20150831
  Transmission Date: 20151125
  Serious: Yes (Hospitalization, Other)
  Sender: FDA-Public Use
  Company Number: US-BAYER-2015-404366

PATIENT
  Age: 63 Year
  Sex: Male

DRUGS (12)
  1. TESTOSTERONE. [Suspect]
     Active Substance: TESTOSTERONE
  2. PREDNISOLONE. [Suspect]
     Active Substance: PREDNISOLONE
  3. ARMOUR THYROID [Suspect]
     Active Substance: THYROID, PORCINE\THYROID, UNSPECIFIED
  4. HYDROCHLOROTHIAZIDE. [Concomitant]
     Active Substance: HYDROCHLOROTHIAZIDE
     Indication: HYPERTENSION
  5. AMLODIPINE [Concomitant]
     Active Substance: AMLODIPINE BESYLATE
     Indication: HYPERTENSION
  6. LISINOPRIL. [Concomitant]
     Active Substance: LISINOPRIL
     Indication: HYPERTENSION
  7. HUMAN GROWTH HORMONE, RECOMBINANT [Suspect]
     Active Substance: SOMATROPIN
  8. MELATONIN [Concomitant]
     Active Substance: MELATONIN
  9. METOPROLOL [Concomitant]
     Active Substance: METOPROLOL
     Indication: HYPERTENSION
  10. ACETYLSALICYLIC ACID (} 100 MG) [Suspect]
     Active Substance: ASPIRIN
  11. VITAMIN E [TOCOPHEROL] [Concomitant]
  12. DEHYDROEPIANDROSTERONE [Suspect]
     Active Substance: PRASTERONE

REACTIONS (8)
  - Gonadotrophin deficiency [None]
  - Secondary hyperthyroidism [None]
  - Drug interaction [None]
  - Hypercoagulation [None]
  - Dehydroepiandrosterone increased [None]
  - Coagulopathy [None]
  - Intracranial venous sinus thrombosis [Not Recovered/Not Resolved]
  - Thalamic infarction [Recovered/Resolved]
